FAERS Safety Report 8613308-0 (Version None)
Quarter: 2012Q3

REPORT INFORMATION
  Report Type: 
  Country: None (occurrence: None)
  Receive Date: 20120822
  Receipt Date: 20120806
  Transmission Date: 20120928
  Serious: Yes (Hospitalization, Disabling, Other)
  Sender: FDA-Public Use
  Company Number: DE-009507513-1206DEU00005

PATIENT

DRUGS (1)
  1. PROPECIA [Suspect]
     Indication: ALOPECIA
     Dosage: 1 MG, QD
     Route: 048
     Dates: start: 20120126, end: 20120306

REACTIONS (12)
  - DEPRESSION [None]
  - TESTICULAR PAIN [None]
  - SPEECH DISORDER [None]
  - SLEEP DISORDER [None]
  - GASTROINTESTINAL DISORDER [None]
  - LOSS OF LIBIDO [None]
  - CARDIAC DISORDER [None]
  - BREAST DISORDER [None]
  - ANXIETY DISORDER [None]
  - MUSCLE ATROPHY [None]
  - ERECTILE DYSFUNCTION [None]
  - EJACULATION DISORDER [None]
